FAERS Safety Report 5081141-5 (Version None)
Quarter: 2006Q3

REPORT INFORMATION
  Report Type: 
  Country: None (occurrence: None)
  Receive Date: 20060720
  Receipt Date: 20060413
  Transmission Date: 20061208
  Serious: Yes (Other)
  Sender: FDA-Public Use
  Company Number: 2006041062

PATIENT
  Age: 58 Year
  Sex: Female
  Weight: 48.5349 kg

DRUGS (3)
  1. CELEBREX [Suspect]
     Indication: PAIN IN EXTREMITY
     Dosage: 200 MG (200 MG,1 IN 1 D)
     Dates: start: 20060318, end: 20060327
  2. CELEBREX [Suspect]
     Indication: TENDONITIS
     Dosage: 200 MG (200 MG,1 IN 1 D)
     Dates: start: 20060318, end: 20060327
  3. TOPROL-XL [Suspect]
     Indication: HYPERTENSION
     Dosage: (25 MG)
     Dates: end: 20060101

REACTIONS (16)
  - ABDOMINAL DISTENSION [None]
  - ALANINE AMINOTRANSFERASE INCREASED [None]
  - ANAEMIA [None]
  - ANXIETY [None]
  - ASPARTATE AMINOTRANSFERASE INCREASED [None]
  - ASTHENIA [None]
  - BLOOD ALKALINE PHOSPHATASE INCREASED [None]
  - BLOOD TRIGLYCERIDES INCREASED [None]
  - DIZZINESS [None]
  - DYSPNOEA [None]
  - PULMONARY THROMBOSIS [None]
  - PYREXIA [None]
  - RASH [None]
  - SKIN EXFOLIATION [None]
  - SWELLING FACE [None]
  - WEIGHT INCREASED [None]
